FAERS Safety Report 7893106-6 (Version None)
Quarter: 2011Q4

REPORT INFORMATION
  Report Type: 
  Country: None (occurrence: None)
  Receive Date: 20111104
  Receipt Date: 20111027
  Transmission Date: 20120403
  Serious: Yes (Other)
  Sender: FDA-Public Use
  Company Number: US-US-EMD SERONO, INC.-7080130

PATIENT
  Sex: Female

DRUGS (2)
  1. REBIF [Suspect]
     Indication: PRODUCT USED FOR UNKNOWN INDICATION
     Route: 058
     Dates: start: 20110727
  2. REBIF [Suspect]
     Route: 058

REACTIONS (8)
  - CONVULSION [None]
  - HEAD INJURY [None]
  - INCORRECT DRUG ADMINISTRATION DURATION [None]
  - NAUSEA [None]
  - HEADACHE [None]
  - LOSS OF CONSCIOUSNESS [None]
  - DIZZINESS [None]
  - INSOMNIA [None]
